FAERS Safety Report 5368803-7 (Version None)
Quarter: 2007Q2

REPORT INFORMATION
  Report Type: 
  Country: None (occurrence: None)
  Receive Date: 20070622
  Receipt Date: 20070622
  Transmission Date: 20071010
  Serious: Yes (Other)
  Sender: FDA-Public Use
  Company Number: None

PATIENT
  Age: 32 Year
  Sex: Female
  Weight: 52.1637 kg

DRUGS (1)
  1. DICLOXACILL  500 MG  SANDOZ [Suspect]
     Indication: MASTITIS
     Dosage: (DURATION: LESS THAN 12 HOURS)
     Dates: start: 20070618, end: 20070618

REACTIONS (3)
  - JOINT SWELLING [None]
  - PRURITUS [None]
  - URTICARIA GENERALISED [None]
